FAERS Safety Report 4530749-1 (Version None)
Quarter: 2004Q4

REPORT INFORMATION
  Report Type: 
  Country: None (occurrence: None)
  Receive Date: 20041216
  Receipt Date: 20041207
  Transmission Date: 20050328
  Serious: Yes (Death)
  Sender: FDA-Public Use
  Company Number: 2004EU001306

PATIENT
  Age: 61 Year
  Sex: Male

DRUGS (5)
  1. FK506(TACROLIMUS CAPSULES) CAPSULE [Suspect]
     Indication: LIVER TRANSPLANT
     Dosage: SEE IMAGE
     Route: 048
     Dates: start: 20040528, end: 20040610
  2. FK506(TACROLIMUS CAPSULES) CAPSULE [Suspect]
     Indication: LIVER TRANSPLANT
     Dosage: SEE IMAGE
     Route: 048
     Dates: start: 20040611
  3. CELLCEPT (MYOCPHENOLATE MOFETIL) [Concomitant]
  4. SOLU-MEDROL [Concomitant]
  5. PREDNISONE [Concomitant]

REACTIONS (1)
  - LUNG DISORDER [None]
